FAERS Safety Report 4668000-4 (Version None)
Quarter: 2005Q2

REPORT INFORMATION
  Report Type: 
  Country: None (occurrence: None)
  Receive Date: 20050520
  Receipt Date: 20050511
  Transmission Date: 20051028
  Serious: Yes (Hospitalization)
  Sender: FDA-Public Use
  Company Number: JP-ABBOTT-05P-087-0300295-00

PATIENT
  Sex: Male
  Weight: 13.8 kg

DRUGS (9)
  1. CEFZON [Suspect]
     Indication: INFLUENZA
     Route: 048
     Dates: start: 20020309, end: 20020309
  2. THEO-DUR [Suspect]
     Indication: INFLUENZA
     Route: 048
     Dates: start: 20020309, end: 20020309
  3. ACETYLCYSTEINE [Suspect]
     Indication: INFLUENZA
     Route: 048
     Dates: start: 20020309, end: 20020309
  4. KETOTIFEN FUMARATE [Suspect]
     Indication: INFLUENZA
     Route: 048
     Dates: start: 20020309, end: 20020309
  5. PL GRAN. [Suspect]
     Indication: INFLUENZA
     Route: 048
     Dates: start: 20020309, end: 20020309
  6. TULOBUTEROL HYDROCHLORIDE [Suspect]
     Indication: INFLUENZA
     Route: 062
     Dates: start: 20020309, end: 20020309
  7. PARACETAMOL [Suspect]
     Indication: INFLUENZA
     Route: 054
     Dates: start: 20020309, end: 20020309
  8. DORMICUM/SWE/INJECTION [Suspect]
     Indication: CONVULSION
     Route: 042
     Dates: start: 20020310, end: 20020310
  9. PENTAZOCINE LACTATE [Concomitant]
     Route: 042

REACTIONS (7)
  - ABDOMINAL PAIN [None]
  - BODY TEMPERATURE INCREASED [None]
  - CONVULSION [None]
  - CONVULSIONS LOCAL [None]
  - MOVEMENT DISORDER [None]
  - MUSCLE SPASMS [None]
  - RHABDOMYOLYSIS [None]
